FAERS Safety Report 8571013-3 (Version None)
Quarter: 2012Q3

REPORT INFORMATION
  Report Type: 
  Country: None (occurrence: None)
  Receive Date: 20120806
  Receipt Date: 20120724
  Transmission Date: 20120928
  Serious: Yes (Other)
  Sender: FDA-Public Use
  Company Number: US-RB-043033-12

PATIENT
  Age: 37 Year
  Sex: Male

DRUGS (1)
  1. MUCINEX D [Suspect]
     Indication: OTORRHOEA
     Route: 048
     Dates: start: 20120716

REACTIONS (18)
  - HEADACHE [None]
  - OCULAR HYPERAEMIA [None]
  - INSOMNIA [None]
  - DIZZINESS [None]
  - OFF LABEL USE [None]
  - NERVOUSNESS [None]
  - SYNCOPE [None]
  - PAIN [None]
  - DISCOMFORT [None]
  - HYPERSENSITIVITY [None]
  - CONFUSIONAL STATE [None]
  - MUSCULOSKELETAL STIFFNESS [None]
  - BODY TEMPERATURE INCREASED [None]
  - DYSURIA [None]
  - HYPERHIDROSIS [None]
  - CAROTID PULSE [None]
  - TREMOR [None]
  - ASTHENIA [None]
